FAERS Safety Report 19117245 (Version 2)
Quarter: 2021Q2

REPORT INFORMATION
  Report Type: Spontaneous
  Country: US (occurrence: US)
  Receive Date: 20210409
  Receipt Date: 20210505
  Transmission Date: 20210717
  Serious: Yes (Other)
  Sender: FDA-Public Use
  Company Number: US-ASTRAZENECA-2021A283251

PATIENT
  Age: 64 Year
  Sex: Female
  Weight: 74.8 kg

DRUGS (6)
  1. NEXIUM 24HR [Suspect]
     Active Substance: ESOMEPRAZOLE MAGNESIUM
     Dosage: GENERIC ESOMEPRAZOLE
     Route: 048
  2. NEXIUM [Suspect]
     Active Substance: ESOMEPRAZOLE MAGNESIUM
     Route: 048
     Dates: start: 2003
  3. NEXIUM 24HR [Suspect]
     Active Substance: ESOMEPRAZOLE MAGNESIUM
     Dosage: OTC
     Route: 048
  4. PFIZER?BIONTECH COVID?19 VACCINE [Suspect]
     Active Substance: TOZINAMERAN
     Dosage: UPPER LEFT ARM, INJECTION
     Route: 065
     Dates: start: 20210319
  5. TIROSINT [Concomitant]
     Active Substance: LEVOTHYROXINE SODIUM
     Dosage: 100MCG 6 DAYS A WEEK, SKIP ONE DAY, BY MOUTH
  6. NEXIUM [Concomitant]
     Active Substance: ESOMEPRAZOLE MAGNESIUM
     Dosage: 40 MG ONCE A DAY

REACTIONS (11)
  - Acne [Recovering/Resolving]
  - Drug dependence [Unknown]
  - Dry skin [Unknown]
  - Inability to afford medication [Unknown]
  - Drug intolerance [Unknown]
  - Rash papular [Recovering/Resolving]
  - Nausea [Recovered/Resolved]
  - Erythema [Unknown]
  - Vaccination complication [Unknown]
  - Rash pruritic [Unknown]
  - Skin exfoliation [Unknown]

NARRATIVE: CASE EVENT DATE: 20210319
